FAERS Safety Report 9147808 (Version 1)
Quarter: 2013Q1

REPORT INFORMATION
  Report Type: Spontaneous
  Country: US (occurrence: US)
  Receive Date: 20130307
  Receipt Date: 20130307
  Transmission Date: 20140127
  Serious: Yes (Other)
  Sender: FDA-Public Use
  Company Number: US-ELI_LILLY_AND_COMPANY-US201302009354

PATIENT
  Sex: Male

DRUGS (4)
  1. HUMULIN 30% REGULAR, 70% NPH [Suspect]
     Indication: TYPE 2 DIABETES MELLITUS
     Dosage: 16 U, EACH MORNING
  2. HUMULIN 30% REGULAR, 70% NPH [Suspect]
     Dosage: 12 U, QD
  3. HUMULIN 30% REGULAR, 70% NPH [Suspect]
     Dosage: 14 U, EACH EVENING
  4. HUMULIN 30% REGULAR, 70% NPH [Suspect]
     Dosage: UNK, PRN

REACTIONS (1)
  - Atrial fibrillation [Not Recovered/Not Resolved]
